FAERS Safety Report 18105042 (Version 2)
Quarter: 2020Q3

REPORT INFORMATION
  Report Type: Spontaneous
  Country: US (occurrence: US)
  Receive Date: 20200803
  Receipt Date: 20200804
  Transmission Date: 20201103
  Serious: Yes (Other)
  Sender: FDA-Public Use
  Company Number: US-PFIZER INC-2020291192

PATIENT
  Age: 71 Year
  Sex: Female
  Weight: 56.7 kg

DRUGS (4)
  1. HYDROCODONE [Suspect]
     Active Substance: HYDROCODONE
     Indication: ARTHRITIS
     Dosage: UNK, 1X/DAY
  2. HYDROCODONE [Suspect]
     Active Substance: HYDROCODONE
     Dosage: UNK, (EVERY FOUR HOURS )
  3. BABY ASPIRIN [Suspect]
     Active Substance: ASPIRIN
     Dosage: UNK
  4. IBRANCE [Suspect]
     Active Substance: PALBOCICLIB
     Indication: BREAST CANCER FEMALE
     Dosage: UNK

REACTIONS (9)
  - Neoplasm progression [Unknown]
  - Nausea [Unknown]
  - White blood cell count decreased [Unknown]
  - Fatigue [Unknown]
  - Irritability [Unknown]
  - Arthralgia [Unknown]
  - Back pain [Unknown]
  - Cancer pain [Unknown]
  - Depressed mood [Unknown]
